FAERS Safety Report 16251199 (Version 1)
Quarter: 2019Q2

REPORT INFORMATION
  Report Type: Spontaneous
  Country: CA (occurrence: CA)
  Receive Date: 20190426
  Receipt Date: 20190426
  Transmission Date: 20190711
  Serious: Yes (Hospitalization, Disabling)
  Sender: FDA-Public Use
  Company Number: None

PATIENT
  Age: 39 Year
  Sex: Female
  Weight: 63 kg

DRUGS (2)
  1. BOTOX [Suspect]
     Active Substance: ONABOTULINUMTOXINA
     Indication: NEURALGIA
     Dosage: ?          QUANTITY:1 INJECTION(S);OTHER FREQUENCY:ONE TIME;?
     Route: 030
     Dates: start: 20180502, end: 20180502
  2. BOTOX [Suspect]
     Active Substance: ONABOTULINUMTOXINA
     Indication: MIGRAINE
     Dosage: ?          QUANTITY:1 INJECTION(S);OTHER FREQUENCY:ONE TIME;?
     Route: 030
     Dates: start: 20180502, end: 20180502

REACTIONS (8)
  - Areflexia [None]
  - Systemic toxicity [None]
  - Tachycardia [None]
  - Gait disturbance [None]
  - Dyspnoea [None]
  - Muscle atrophy [None]
  - Muscular weakness [None]
  - Bladder disorder [None]

NARRATIVE: CASE EVENT DATE: 20180502
